FAERS Safety Report 17836200 (Version 2)
Quarter: 2020Q3

REPORT INFORMATION
  Report Type: Spontaneous
  Country: US (occurrence: US)
  Receive Date: 20200528
  Receipt Date: 20200903
  Transmission Date: 20201103
  Serious: No
  Sender: FDA-Public Use
  Company Number: NVSC2020US145916

PATIENT
  Sex: Female

DRUGS (2)
  1. TYKERB [Suspect]
     Active Substance: LAPATINIB DITOSYLATE
     Indication: BREAST CANCER
     Dosage: 1000 MG, QD
     Route: 048
     Dates: start: 20190412
  2. TYKERB [Suspect]
     Active Substance: LAPATINIB DITOSYLATE
     Indication: HEPATITIS VIRAL
     Dosage: 500 MG, QD
     Route: 048

REACTIONS (1)
  - Incorrect dose administered [Unknown]
